FAERS Safety Report 11651909 (Version 2)
Quarter: 2015Q4

REPORT INFORMATION
  Report Type: Spontaneous
  Country: CH (occurrence: CH)
  Receive Date: 20151022
  Receipt Date: 20151120
  Transmission Date: 20160304
  Serious: Yes (Other)
  Sender: FDA-Public Use
  Company Number: CH-ACTAVIS-2015-22452

PATIENT
  Age: 44 Year
  Sex: Male

DRUGS (1)
  1. MIRTAZAPINE (UNKNOWN) [Suspect]
     Active Substance: MIRTAZAPINE
     Indication: PRODUCT USED FOR UNKNOWN INDICATION
     Dosage: 30 MG, DAILY
     Route: 048
     Dates: start: 20150924

REACTIONS (2)
  - Jaundice [Recovered/Resolved]
  - Transaminases increased [Unknown]

NARRATIVE: CASE EVENT DATE: 20151010
